FAERS Safety Report 21360479 (Version 1)
Quarter: 2022Q3

REPORT INFORMATION
  Report Type: Spontaneous
  Country: US (occurrence: None)
  Receive Date: 20220921
  Receipt Date: 20220921
  Transmission Date: 20221027
  Serious: No
  Sender: FDA-Public Use
  Company Number: None

PATIENT
  Age: 45 Year
  Sex: Female
  Weight: 62.6 kg

DRUGS (12)
  1. DEFERASIROX [Suspect]
     Active Substance: DEFERASIROX
     Indication: Sickle cell anaemia with crisis
     Dosage: FREQUENCY : DAILY;?
     Route: 048
     Dates: start: 202103
  2. AUGMENTIN [Concomitant]
     Active Substance: AMOXICILLIN\CLAVULANATE POTASSIUM
  3. ENDARI [Concomitant]
     Active Substance: GLUTAMINE
  4. EROGCALCIFEROL [Concomitant]
  5. FOLIC ACID [Concomitant]
     Active Substance: FOLIC ACID
  6. IBUPROFEN [Concomitant]
     Active Substance: IBUPROFEN
  7. LEVOFLOXACIN [Concomitant]
     Active Substance: LEVOFLOXACIN
  8. MS CONTIN [Concomitant]
     Active Substance: MORPHINE SULFATE
  9. ONDANSETRON [Concomitant]
     Active Substance: ONDANSETRON
  10. OXYCODONE [Concomitant]
     Active Substance: OXYCODONE
  11. PREGABALIN [Concomitant]
     Active Substance: PREGABALIN
  12. VOXELOTOR [Concomitant]
     Active Substance: VOXELOTOR

REACTIONS (1)
  - Hospitalisation [None]
